FAERS Safety Report 20660244 (Version 1)
Quarter: 2022Q1

REPORT INFORMATION
  Report Type: Spontaneous
  Country: US (occurrence: US)
  Receive Date: 20220331
  Receipt Date: 20220331
  Transmission Date: 20220424
  Serious: No
  Sender: FDA-Public Use
  Company Number: US-IBSA PHARMA INC.-2021-IBS-01354

PATIENT
  Age: 64 Year
  Weight: 86.18 kg

DRUGS (5)
  1. FLECTOR [Suspect]
     Active Substance: DICLOFENAC EPOLAMINE
     Indication: Back injury
     Dates: start: 2007
  2. FLECTOR [Suspect]
     Active Substance: DICLOFENAC EPOLAMINE
     Indication: Limb injury
  3. FLECTOR [Suspect]
     Active Substance: DICLOFENAC EPOLAMINE
     Indication: Joint injury
  4. FLECTOR [Suspect]
     Active Substance: DICLOFENAC EPOLAMINE
     Indication: Neck injury
  5. LIDODERM [Concomitant]
     Active Substance: LIDOCAINE

REACTIONS (9)
  - Pain [Unknown]
  - Gait disturbance [Unknown]
  - Arthralgia [Unknown]
  - Musculoskeletal discomfort [Unknown]
  - Intervertebral disc disorder [Unknown]
  - Malaise [Unknown]
  - Drug dependence [Unknown]
  - Visual impairment [Unknown]
  - Product substitution issue [Unknown]
